FAERS Safety Report 7151390-0 (Version None)
Quarter: 2010Q4

REPORT INFORMATION
  Report Type: 
  Country: None (occurrence: None)
  Receive Date: 20101210
  Receipt Date: 20101130
  Transmission Date: 20110411
  Serious: Yes (Other)
  Sender: FDA-Public Use
  Company Number: GXKR2010US13535

PATIENT
  Age: 26 Year
  Sex: Male

DRUGS (7)
  1. CITALOPRAM (NGX) [Suspect]
     Indication: DEPRESSION
     Dosage: 20 MG/DAY
     Route: 048
  2. CITALOPRAM (NGX) [Suspect]
     Dosage: 40 MG/DAY
     Route: 048
  3. WARFARIN SODIUM [Concomitant]
     Dosage: 6 MG DAILY
     Route: 048
  4. MULTI-VITAMINS [Concomitant]
     Dosage: 1 DF/DAY
     Route: 048
  5. TRAZODONE [Concomitant]
     Dosage: 50 MG/DAY
     Route: 048
  6. HYDROCODONE BITARTRATE AND ACETAMINOPHEN [Concomitant]
     Indication: NECK PAIN
     Dosage: AS NEEDED
     Route: 065
  7. HYDROCODONE BITARTRATE AND ACETAMINOPHEN [Concomitant]
     Dosage: 1 DF, Q8H
     Route: 065

REACTIONS (5)
  - AKATHISIA [None]
  - DYSKINESIA [None]
  - GRIMACING [None]
  - RESTLESSNESS [None]
  - TARDIVE DYSKINESIA [None]
